FAERS Safety Report 5962615-9 (Version None)
Quarter: 2008Q4

REPORT INFORMATION
  Report Type: 
  Country: None (occurrence: None)
  Receive Date: 20081121
  Receipt Date: 20081110
  Transmission Date: 20090506
  Serious: Yes (Other)
  Sender: FDA-Public Use
  Company Number: US-PFIZER INC-2008097033

PATIENT
  Age: 63 Year
  Sex: Female

DRUGS (7)
  1. GABAPENTIN [Suspect]
  2. TAMOXIFEN [Suspect]
     Indication: BREAST CANCER
  3. METHIMAZOLE [Suspect]
  4. ANASTROZOLE [Suspect]
  5. LETROZOLE [Suspect]
  6. TRASTUZUMAB [Suspect]
  7. FULVESTRANT [Suspect]

REACTIONS (1)
  - CUTANEOUS VASCULITIS [None]
